FAERS Safety Report 15424081 (Version 2)
Quarter: 2018Q4

REPORT INFORMATION
  Report Type: Report from Study
  Country: RO (occurrence: RO)
  Receive Date: 20180925
  Receipt Date: 20181024
  Transmission Date: 20190204
  Serious: Yes (Life-Threatening, Hospitalization, Other)
  Sender: FDA-Public Use
  Company Number: PHHY2018RO038215

PATIENT
  Age: 2 Year
  Sex: Male
  Weight: 12 kg

DRUGS (9)
  1. FLUCONAZOL [Concomitant]
     Active Substance: FLUCONAZOLE
     Indication: ANTIFUNGAL PROPHYLAXIS
     Dosage: 25 ML, UNK
     Route: 065
     Dates: start: 20170421, end: 20170615
  2. FLUCONAZOL [Concomitant]
     Active Substance: FLUCONAZOLE
     Indication: ANTIBIOTIC PROPHYLAXIS
     Dosage: 100 MG, UNK
     Route: 065
     Dates: start: 20170630, end: 20170717
  3. CIPROFLOXACIN. [Concomitant]
     Active Substance: CIPROFLOXACIN
     Indication: ANTIFUNGAL PROPHYLAXIS
     Dosage: 250 MG, UNK
     Route: 065
     Dates: start: 20170630, end: 20170717
  4. METRONIDAZOL [Concomitant]
     Active Substance: METRONIDAZOLE
     Indication: ANTIBIOTIC PROPHYLAXIS
     Dosage: 250 MG, UNK
     Route: 065
     Dates: start: 20170630, end: 20170717
  5. L-ASPARAGINASE [Suspect]
     Active Substance: ASPARAGINASE
     Indication: PRODUCT USED FOR UNKNOWN INDICATION
     Route: 065
  6. ZARZIO [Concomitant]
     Active Substance: FILGRASTIM
     Indication: NEUTROPENIA
     Dosage: 10 MIU, UNK
     Route: 065
     Dates: start: 20170507, end: 20170615
  7. ZARZIO [Concomitant]
     Active Substance: FILGRASTIM
     Indication: PROPHYLAXIS
     Dosage: 10 MIU, UNK
     Route: 065
     Dates: start: 20170704, end: 20170717
  8. GLIVEC [Suspect]
     Active Substance: IMATINIB MESYLATE
     Indication: ACUTE LYMPHOCYTIC LEUKAEMIA
     Dosage: 150 MG, UNK
     Route: 048
     Dates: start: 20170314
  9. CIPROFLOXACIN. [Concomitant]
     Active Substance: CIPROFLOXACIN
     Indication: ANTIBIOTIC PROPHYLAXIS
     Dosage: 250 MG, UNK
     Route: 065
     Dates: start: 20170321, end: 20170615

REACTIONS (22)
  - Ear swelling [Recovered/Resolved]
  - Face oedema [Recovered/Resolved]
  - Nausea [Recovered/Resolved]
  - Enterobacter sepsis [Recovered/Resolved]
  - Anaemia [Recovered/Resolved]
  - Pyrexia [Recovered/Resolved]
  - Pyrexia [Recovered/Resolved]
  - Neutropenia [Recovered/Resolved]
  - Rash generalised [Recovered/Resolved]
  - Cough [Recovered/Resolved]
  - Pseudomonal sepsis [Recovered/Resolved]
  - Drug hypersensitivity [Recovered/Resolved]
  - Dizziness [Recovered/Resolved]
  - Oedema mouth [Recovered/Resolved]
  - Stomatitis [Recovered/Resolved]
  - Thrombocytopenia [Recovered/Resolved]
  - Feeding disorder [Recovered/Resolved]
  - Feeding disorder [Recovered/Resolved]
  - Skin lesion [Recovered/Resolved]
  - General physical health deterioration [Recovered/Resolved]
  - Vomiting [Recovered/Resolved]
  - Vomiting [Recovered/Resolved]

NARRATIVE: CASE EVENT DATE: 20170515
